FAERS Safety Report 5479019-8 (Version None)
Quarter: 2007Q4

REPORT INFORMATION
  Report Type: 
  Country: None (occurrence: None)
  Receive Date: 20071006
  Receipt Date: 20070925
  Transmission Date: 20080405
  Serious: Yes (Other)
  Sender: FDA-Public Use
  Company Number: JP-PFIZER INC-2007080913

PATIENT
  Age: 33 Year
  Sex: Female

DRUGS (4)
  1. PRAZOSIN HCL [Suspect]
     Indication: FAMILIAL MEDITERRANEAN FEVER
     Route: 048
  2. COLCHICINE [Suspect]
     Indication: FAMILIAL MEDITERRANEAN FEVER
     Route: 048
  3. RESERPINE [Suspect]
     Indication: FAMILIAL MEDITERRANEAN FEVER
  4. DICLOFENAC SODIUM [Suspect]
     Indication: FAMILIAL MEDITERRANEAN FEVER

REACTIONS (4)
  - ABDOMINAL PAIN [None]
  - BONE MARROW FAILURE [None]
  - DIARRHOEA [None]
  - FATIGUE [None]
